FAERS Safety Report 4382909-0 (Version None)
Quarter: 2004Q2

REPORT INFORMATION
  Report Type: 
  Country: None (occurrence: None)
  Receive Date: 20040617
  Receipt Date: 20040608
  Transmission Date: 20050107
  Serious: Yes (Other)
  Sender: FDA-Public Use
  Company Number: 2004038464

PATIENT
  Sex: Female

DRUGS (1)
  1. NEURONTIN [Suspect]
     Indication: PAIN

REACTIONS (5)
  - BALANCE DISORDER [None]
  - DEPRESSION [None]
  - DRUG ADDICT [None]
  - HYPERHIDROSIS [None]
  - PAIN [None]
